FAERS Safety Report 23977688 (Version 1)
Quarter: 2024Q2

REPORT INFORMATION
  Report Type: Spontaneous
  Country: US (occurrence: US)
  Receive Date: 20240614
  Receipt Date: 20240614
  Transmission Date: 20240715
  Serious: Yes (Hospitalization)
  Sender: FDA-Public Use
  Company Number: US-ANIPHARMA-2024-US-032221

PATIENT
  Age: 57 Year
  Sex: Female
  Weight: 99.79 kg

DRUGS (22)
  1. CORTICOTROPIN [Suspect]
     Active Substance: CORTICOTROPIN
     Indication: Multiple sclerosis
     Dosage: INJECT 0.5 ML (40 UNITS) UNDER THE SKIN ONE TIME A DAY FOR 10 DAYS **VIAL EXPIRES 28 DAYS AFTER 1ST
     Route: 058
     Dates: start: 20240603
  2. BACLOFEN [Concomitant]
     Active Substance: BACLOFEN
  3. LIPITOR [Suspect]
     Active Substance: ATORVASTATIN CALCIUM
  4. HYDROXYCHLOROQUINE SULFATE [Concomitant]
     Active Substance: HYDROXYCHLOROQUINE SULFATE
  5. OMEPRAZOLE [Concomitant]
     Active Substance: DONEPEZIL HYDROCHLORIDE\OMEPRAZOLE\OMEPRAZOLE MAGNESIUM
  6. DULOXETINE HYDROCHLORIDE [Concomitant]
     Active Substance: DULOXETINE HYDROCHLORIDE
  7. HYDRALAZINE HCL [Concomitant]
     Active Substance: HYDRALAZINE HYDROCHLORIDE
  8. ANASTROZOLE [Concomitant]
     Active Substance: ANASTROZOLE
  9. ASPIRIN [Concomitant]
     Active Substance: ASPIRIN
  10. MELOXICAM [Concomitant]
     Active Substance: MELOXICAM
  11. MODAFINIL [Concomitant]
     Active Substance: MODAFINIL
  12. GABAPENTIN [Concomitant]
     Active Substance: GABAPENTIN
  13. LORATADINE [Concomitant]
     Active Substance: LORATADINE
  14. VITAMIN C [Concomitant]
     Active Substance: ASCORBIC ACID
  15. MAGNESIUM [Concomitant]
     Active Substance: MAGNESIUM
  16. EFFEXOR XR [Concomitant]
     Active Substance: VENLAFAXINE HYDROCHLORIDE
  17. AMITRIPTYLINE HYDROCHLORIDE [Concomitant]
     Active Substance: AMITRIPTYLINE HYDROCHLORIDE
  18. SYNTHROID [Concomitant]
     Active Substance: LEVOTHYROXINE SODIUM
  19. LYRICA [Concomitant]
     Active Substance: PREGABALIN
  20. VITAMINS [Concomitant]
     Active Substance: VITAMINS
  21. VITAMIN D-400 [Concomitant]
  22. TIZANIDINE HYDROCHLORIDE [Concomitant]
     Active Substance: TIZANIDINE HYDROCHLORIDE

REACTIONS (4)
  - Hypertension [Recovered/Resolved]
  - Drug ineffective [Not Recovered/Not Resolved]
  - Disease progression [Not Recovered/Not Resolved]
  - Contraindicated product administered [Unknown]

NARRATIVE: CASE EVENT DATE: 20240603
